FAERS Safety Report 6460589-8 (Version None)
Quarter: 2009Q4

REPORT INFORMATION
  Report Type: 
  Country: None (occurrence: None)
  Receive Date: 20091130
  Receipt Date: 20091120
  Transmission Date: 20100525
  Serious: Yes (Life-Threatening, Hospitalization)
  Sender: FDA-Public Use
  Company Number: JP-JNJFOC-20091104187

PATIENT
  Sex: Male
  Weight: 38 kg

DRUGS (9)
  1. CONCERTA [Suspect]
     Route: 048
     Dates: start: 20090826
  2. CONCERTA [Suspect]
     Route: 048
     Dates: start: 20090826
  3. CONCERTA [Suspect]
     Route: 048
     Dates: start: 20090826
  4. CONCERTA [Suspect]
     Indication: ATTENTION DEFICIT/HYPERACTIVITY DISORDER
     Route: 048
     Dates: start: 20090826
  5. HORMONE PREPARATIONS INCLUDING ANTIHORMONE PREPARATIONS [Concomitant]
     Route: 065
  6. GENOTROPIN [Concomitant]
     Indication: DWARFISM
     Route: 065
  7. CORTRIL [Concomitant]
     Indication: DWARFISM
     Route: 065
  8. THYRADIN-S [Concomitant]
     Indication: DWARFISM
     Route: 048
  9. DESMOPRESSIN [Concomitant]
     Indication: ENURESIS
     Route: 045

REACTIONS (11)
  - ASTHENIA [None]
  - ATELECTASIS [None]
  - CIRCULATORY COLLAPSE [None]
  - ENCEPHALOPATHY [None]
  - FAECAL INCONTINENCE [None]
  - INADEQUATE DIET [None]
  - MYOSITIS [None]
  - PSYCHIATRIC SYMPTOM [None]
  - RESPIRATORY FAILURE [None]
  - SLEEP DISORDER [None]
  - SYSTEMIC INFLAMMATORY RESPONSE SYNDROME [None]
